FAERS Safety Report 10896327 (Version 1)
Quarter: 2015Q1

REPORT INFORMATION
  Report Type: Report from Study
  Country: US (occurrence: US)
  Receive Date: 20150309
  Receipt Date: 20150309
  Transmission Date: 20150721
  Serious: Yes (Other)
  Sender: FDA-Public Use
  Company Number: US-ROCHE-668381

PATIENT
  Age: 57 Year
  Sex: Female
  Weight: 55 kg

DRUGS (6)
  1. METOCLOPRAMIDE. [Concomitant]
     Active Substance: METOCLOPRAMIDE
     Indication: PRODUCT USED FOR UNKNOWN INDICATION
     Route: 065
  2. ZOFRAN [Concomitant]
     Active Substance: ONDANSETRON HYDROCHLORIDE
     Indication: PRODUCT USED FOR UNKNOWN INDICATION
     Route: 065
  3. SUNITINIB [Suspect]
     Active Substance: SUNITINIB
     Dosage: LAST DOSE OF SUNITINIB MALATE WAS ADMINISTERED ON 29/JUN/2009
     Route: 048
     Dates: start: 20090603, end: 20090629
  4. SUNITINIB [Suspect]
     Active Substance: SUNITINIB
     Indication: RENAL CELL CARCINOMA
     Dosage: 1-28 FOR 4 WEEKS ON AND 2 WEEKS OFF.
     Route: 048
     Dates: start: 20081215, end: 20090520
  5. BEVACIZUMAB [Suspect]
     Active Substance: BEVACIZUMAB
     Indication: RENAL CELL CARCINOMA
     Dosage: LAST DOSE OF BEVACIZUMAB PRIOR TO THE EVENT 06/MAY/2009
     Route: 042
     Dates: start: 20081215, end: 20090520
  6. ATIVAN [Concomitant]
     Active Substance: LORAZEPAM
     Indication: PRODUCT USED FOR UNKNOWN INDICATION
     Route: 065

REACTIONS (5)
  - Fatigue [Unknown]
  - Thrombotic microangiopathy [Recovered/Resolved]
  - Hypertension [Unknown]
  - Platelet count decreased [Recovered/Resolved]
  - Haptoglobin decreased [Recovered/Resolved]

NARRATIVE: CASE EVENT DATE: 20090520
